FAERS Safety Report 6765307-1 (Version None)
Quarter: 2010Q2

REPORT INFORMATION
  Report Type: 
  Country: None (occurrence: None)
  Receive Date: 20100611
  Receipt Date: 20100601
  Transmission Date: 20101027
  Serious: Yes (Hospitalization)
  Sender: FDA-Public Use
  Company Number: CA-JNJFOC-20100601616

PATIENT
  Sex: Male
  Weight: 65 kg

DRUGS (8)
  1. REMICADE [Suspect]
     Indication: RHEUMATOID ARTHRITIS
     Route: 042
  2. APO-PREDNISONE [Concomitant]
  3. CALCIUM CARBONATE [Concomitant]
  4. CRESTOR [Concomitant]
  5. NITRAZEPAM [Concomitant]
     Dosage: AT BEDTIME AS NEEDED
  6. EZETROL [Concomitant]
  7. PANTOPRAZOLE [Concomitant]
  8. BISOPROLOL [Concomitant]

REACTIONS (1)
  - TRANSURETHRAL PROSTATECTOMY [None]
